FAERS Safety Report 23015236 (Version 2)
Quarter: 2024Q3

REPORT INFORMATION
  Report Type: Report from Study
  Country: HN (occurrence: HN)
  Receive Date: 20231002
  Receipt Date: 20240802
  Transmission Date: 20241016
  Serious: Yes (Other)
  Sender: NOVARTIS
  Company Number: HN-002147023-NVSC2023HN210966

PATIENT
  Sex: Male

DRUGS (4)
  1. EXFORGE [Suspect]
     Active Substance: AMLODIPINE BESYLATE\VALSARTAN
     Indication: Hypertension
     Dosage: 0.5 DOSAGE FORM QD (OF 10/320 MG)
     Route: 048
     Dates: start: 2016, end: 2020
  2. EXFORGE [Suspect]
     Active Substance: AMLODIPINE BESYLATE\VALSARTAN
     Dosage: 1 DOSAGE FORM QD (10/320 MG)
     Route: 065
     Dates: start: 2020
  3. SACUBITRIL\VALSARTAN [Suspect]
     Active Substance: SACUBITRIL\VALSARTAN
     Indication: Cardiac failure
     Dosage: 0.5 DOSAGE FORM QD (OF 100 MG) (STARTED 4 OR 5 YEARS AGO)
     Route: 065
     Dates: end: 2020
  4. SACUBITRIL\VALSARTAN [Suspect]
     Active Substance: SACUBITRIL\VALSARTAN
     Dosage: 100 MG, QD
     Route: 048
     Dates: end: 20230924

REACTIONS (6)
  - Fluid retention [Unknown]
  - COVID-19 [Unknown]
  - Drug ineffective [Unknown]
  - Swelling [Unknown]
  - Wrong technique in product usage process [Unknown]
  - Contraindicated product administered [Unknown]

NARRATIVE: CASE EVENT DATE: 20200101
